FAERS Safety Report 19801250 (Version 3)
Quarter: 2022Q1

REPORT INFORMATION
  Report Type: Report from Study
  Country: US (occurrence: US)
  Receive Date: 20210907
  Receipt Date: 20220117
  Transmission Date: 20220423
  Serious: Yes (Death, Other)
  Sender: FDA-Public Use
  Company Number: US-NOVARTISPH-NVSC2021US202125

PATIENT
  Age: 40 Year
  Sex: Male
  Weight: 90.4 kg

DRUGS (10)
  1. NEORAL [Suspect]
     Active Substance: CYCLOSPORINE
     Indication: COVID-19
     Dosage: 230 MG, BID
     Route: 048
     Dates: start: 20210720
  2. DEXAMETHASONE [Suspect]
     Active Substance: DEXAMETHASONE
     Indication: COVID-19
     Dosage: UNK
     Route: 048
     Dates: start: 20210715
  3. DEXAMETHASONE [Suspect]
     Active Substance: DEXAMETHASONE
     Dosage: 6 MG, QD
     Route: 042
     Dates: start: 20210718, end: 20210728
  4. REMDESIVIR [Suspect]
     Active Substance: REMDESIVIR
     Indication: COVID-19
     Dosage: 100 MG, QD
     Route: 042
     Dates: start: 20210720
  5. TOCILIZUMAB [Suspect]
     Active Substance: TOCILIZUMAB
     Indication: Product used for unknown indication
     Dosage: 800 MG, ONCE/SINGLE
     Route: 042
     Dates: start: 20210718
  6. ENOXAPARIN [Concomitant]
     Active Substance: ENOXAPARIN
     Indication: Thrombosis prophylaxis
     Dosage: 40 MG, Q12H
     Route: 058
     Dates: start: 20210720
  7. FAMOTIDINE [Concomitant]
     Active Substance: FAMOTIDINE
     Indication: Gastrointestinal disorder prophylaxis
     Dosage: 20 MG, QD
     Route: 048
     Dates: start: 20210718
  8. INSULIN LISPRO [Concomitant]
     Active Substance: INSULIN LISPRO
     Indication: Hyperglycaemia
     Dosage: SLIDING SCALE 0-8 UNITS WITH MEALS
     Route: 058
     Dates: start: 20210719
  9. SENNA [Concomitant]
     Active Substance: SENNA LEAF\SENNOSIDES\SENNOSIDES A AND B
     Indication: Constipation
     Dosage: 17.2 MG, QD
     Route: 048
     Dates: start: 20210721
  10. MAGNESIUM HYDROXIDE [Concomitant]
     Active Substance: MAGNESIUM HYDROXIDE
     Indication: Constipation
     Dosage: 2400 MG, QD
     Route: 048
     Dates: start: 20210723, end: 20210723

REACTIONS (1)
  - Pneumonia [Fatal]

NARRATIVE: CASE EVENT DATE: 20210723
